FAERS Safety Report 18487529 (Version 1)
Quarter: 2020Q4

REPORT INFORMATION
  Report Type: Spontaneous
  Country: US (occurrence: US)
  Receive Date: 20201110
  Receipt Date: 20201110
  Transmission Date: 20210114
  Serious: Yes (Other)
  Sender: FDA-Public Use
  Company Number: US-PURDUE-USA-2020-0173719

PATIENT
  Sex: Male

DRUGS (2)
  1. OXYCODONE/ ACETAMINOPHEN TABLETS [Suspect]
     Active Substance: ACETAMINOPHEN\OXYCODONE HYDROCHLORIDE
     Indication: BACK PAIN
     Dosage: UNK, UNK
     Route: 048
     Dates: start: 2014
  2. PERCOCET                           /00446701/ [Suspect]
     Active Substance: ACETAMINOPHEN\OXYCODONE HYDROCHLORIDE\OXYCODONE TEREPHTHALATE
     Indication: BACK PAIN
     Dosage: UNK UNK, UNK
     Route: 048
     Dates: start: 2014

REACTIONS (6)
  - Drug dependence [Unknown]
  - Hypoacusis [Unknown]
  - Major depression [Unknown]
  - Cardiac disorder [Unknown]
  - Overdose [Unknown]
  - Mental disorder [Unknown]

NARRATIVE: CASE EVENT DATE: 2017
